FAERS Safety Report 8222640-4 (Version None)
Quarter: 2012Q1

REPORT INFORMATION
  Report Type: 
  Country: None (occurrence: None)
  Receive Date: 20120320
  Receipt Date: 20120312
  Transmission Date: 20120608
  Serious: Yes (Hospitalization, Other)
  Sender: FDA-Public Use
  Company Number: US-ASTRAZENECA-2011SE32192

PATIENT
  Age: 65 Year
  Sex: Female

DRUGS (6)
  1. OMEPRAZOLE [Concomitant]
     Indication: GASTROOESOPHAGEAL REFLUX DISEASE
     Route: 065
  2. NEXIUM [Suspect]
     Indication: GASTROOESOPHAGEAL REFLUX DISEASE
     Route: 048
  3. HYDROCHLOROTHIAZIDE [Concomitant]
     Indication: HYPERTENSION
     Route: 065
  4. ENALOPRIL [Concomitant]
     Route: 065
  5. NEXIUM [Suspect]
     Route: 048
     Dates: start: 20071101, end: 20110101
  6. LEVOTHYRODINE [Concomitant]
     Indication: HYPERTENSION
     Route: 065

REACTIONS (4)
  - ASTHMA [None]
  - BONE DENSITY DECREASED [None]
  - OSTEOPOROSIS [None]
  - DEPRESSION [None]
